FAERS Safety Report 6817744-4 (Version None)
Quarter: 2010Q3

REPORT INFORMATION
  Report Type: 
  Country: None (occurrence: None)
  Receive Date: 20100706
  Receipt Date: 20100623
  Transmission Date: 20110219
  Serious: Yes (Other)
  Sender: FDA-Public Use
  Company Number: FI-AMGEN-QUU416190

PATIENT
  Sex: Female

DRUGS (6)
  1. ENBREL [Suspect]
     Indication: RHEUMATOID ARTHRITIS
     Route: 058
     Dates: start: 20031101
  2. IMOVANE [Concomitant]
     Dosage: 7.5 MG EVERY 1 PRN
     Route: 048
  3. VOLTAREN [Concomitant]
     Dosage: 50 MG EVERY 1 PRN
  4. OMEPRAZOLE [Concomitant]
     Indication: HIATUS HERNIA
     Route: 048
  5. BURANA [Concomitant]
     Dosage: UNSPECIFIED DOSE PER NEED
     Route: 048
  6. PARA-TABS [Concomitant]
     Dosage: 500 MG EVERY 1 PRN
     Route: 048

REACTIONS (4)
  - GASTRITIS [None]
  - IDIOPATHIC PULMONARY FIBROSIS [None]
  - PNEUMONITIS [None]
  - PULMONARY SARCOIDOSIS [None]
